FAERS Safety Report 9025169 (Version 1)
Quarter: 2013Q1

REPORT INFORMATION
  Report Type: Spontaneous
  Country: US (occurrence: US)
  Receive Date: 20130122
  Receipt Date: 20130122
  Transmission Date: 20140127
  Serious: No
  Sender: FDA-Public Use
  Company Number: US-009507513-1301USA010270

PATIENT
  Age: 2 Year
  Sex: Male
  Weight: 11.34 kg

DRUGS (1)
  1. CLARITIN ORAL SOLUTION [Suspect]
     Indication: HYPERSENSITIVITY
     Dosage: 3.75 MG, BID
     Route: 048
     Dates: start: 20130110

REACTIONS (1)
  - Overdose [Unknown]
